FAERS Safety Report 8249926-1 (Version None)
Quarter: 2012Q2

REPORT INFORMATION
  Report Type: 
  Country: None (occurrence: None)
  Receive Date: 20120402
  Receipt Date: 20120328
  Transmission Date: 20120825
  Serious: Yes (Hospitalization, Other)
  Sender: FDA-Public Use
  Company Number: US-ASTRAZENECA-2012SE11211

PATIENT
  Age: 24226 Day
  Sex: Female

DRUGS (18)
  1. FUROSEMIDE [Concomitant]
     Dates: start: 20101203
  2. CARVEDILOL [Concomitant]
     Dates: start: 20110210
  3. LORAZEPAM [Concomitant]
     Dates: start: 20101110
  4. BACLOFEN [Concomitant]
     Dates: start: 20101110
  5. PRILOSEC [Suspect]
     Dosage: TAKE IT ONE HALF HOUR BEFORE DINNER
     Route: 065
     Dates: start: 20101110
  6. LISINOPRIL [Concomitant]
     Dosage: 10 TO 20 MG DAILY
     Dates: start: 20101105
  7. OXYCODONE HCL AND ACETAMINOPHEN [Concomitant]
     Dosage: 10/325 MG 1 TABLET EVERY 4 HOURS AS NEEDED
     Dates: start: 20101105
  8. OXYCONTIN [Concomitant]
     Dates: start: 20101110
  9. LORAZEPAM [Concomitant]
     Dates: start: 20101105
  10. PRILOSEC [Suspect]
     Route: 065
     Dates: start: 20101110
  11. LISINOPRIL [Concomitant]
     Dates: start: 20101110
  12. GLYBURIDE [Concomitant]
     Dates: start: 20101110
  13. PANTOPRAZOLE [Concomitant]
     Dates: start: 20101117
  14. GLYBURIDE [Concomitant]
     Dates: start: 20101105
  15. OXYCONTIN [Concomitant]
     Dosage: 40 MG 1 TABLET EVERY 8 HOURS
     Dates: start: 20101105
  16. OXYCODONE HCL AND ACETAMINOPHEN [Concomitant]
     Dates: start: 20101110
  17. PREDNISONE TAB [Concomitant]
     Dosage: 2 TABLETS TWICE DAILY AS DIRECTED
     Dates: start: 20101122
  18. ALLOPURINOL [Concomitant]
     Dates: start: 20110210

REACTIONS (11)
  - PERIPHERAL VASCULAR DISORDER [None]
  - DYSPHAGIA [None]
  - VASCULITIS [None]
  - MOBILITY DECREASED [None]
  - SKIN ULCER [None]
  - HYPERTENSIVE NEPHROPATHY [None]
  - ANAEMIA [None]
  - DYSTHYMIC DISORDER [None]
  - RENAL FAILURE ACUTE [None]
  - SLEEP APNOEA SYNDROME [None]
  - CELLULITIS [None]
